FAERS Safety Report 25712107 (Version 1)
Quarter: 2025Q3

REPORT INFORMATION
  Report Type: Spontaneous
  Country: US (occurrence: US)
  Receive Date: 20250821
  Receipt Date: 20250821
  Transmission Date: 20251021
  Serious: No
  Sender: AMGEN
  Company Number: US-AMGEN-USASP2025163033

PATIENT
  Sex: Female

DRUGS (1)
  1. EVENITY [Suspect]
     Active Substance: ROMOSOZUMAB-AQQG
     Indication: Product used for unknown indication
     Dosage: 1 DOSE, QMO (EVERY 30 DAYS FOR 12 MONTHS)
     Route: 065
     Dates: end: 20250717

REACTIONS (2)
  - Large intestine polyp [Not Recovered/Not Resolved]
  - Nodule [Not Recovered/Not Resolved]
